FAERS Safety Report 24683750 (Version 2)
Quarter: 2025Q1

REPORT INFORMATION
  Report Type: Spontaneous
  Country: US (occurrence: US)
  Receive Date: 20241202
  Receipt Date: 20250109
  Transmission Date: 20250408
  Serious: Yes (Other)
  Sender: NOVO NORDISK
  Company Number: US-NOVOPROD-1325053

PATIENT
  Age: 60 Year
  Sex: Female

DRUGS (1)
  1. VAGIFEM [Suspect]
     Active Substance: ESTRADIOL
     Indication: Product used for unknown indication
     Route: 067
     Dates: start: 202312

REACTIONS (1)
  - Food allergy [Recovered/Resolved]

NARRATIVE: CASE EVENT DATE: 20240901
